FAERS Safety Report 9184465 (Version 1)
Quarter: 2013Q1

REPORT INFORMATION
  Report Type: Spontaneous
  Country: US (occurrence: US)
  Receive Date: 20130322
  Receipt Date: 20130322
  Transmission Date: 20140127
  Serious: Yes (Hospitalization)
  Sender: FDA-Public Use
  Company Number: US-ABBOTT-13P-163-1064184-00

PATIENT
  Sex: Female
  Weight: 77.18 kg

DRUGS (13)
  1. SYNTHROID [Suspect]
     Indication: PRODUCT USED FOR UNKNOWN INDICATION
     Dates: start: 1995
  2. SYNTHROID [Suspect]
  3. PROTONIX [Suspect]
     Indication: ASTHMA
     Dates: end: 2008
  4. PROTONIX [Suspect]
     Dates: start: 2008
  5. ATENOLOL [Suspect]
     Indication: HYPERTENSION
     Dates: end: 2006
  6. NORVASC [Suspect]
     Indication: PRODUCT USED FOR UNKNOWN INDICATION
     Dates: start: 1998
  7. HYDREAUX [Suspect]
     Indication: THROMBOSIS
     Dates: start: 2001
  8. COREG [Suspect]
     Indication: PRODUCT USED FOR UNKNOWN INDICATION
     Dates: start: 2003, end: 2013
  9. ANAGRELIDE [Suspect]
     Indication: THROMBOSIS
  10. MICARDIS [Concomitant]
     Indication: PRODUCT USED FOR UNKNOWN INDICATION
     Dates: end: 201212
  11. LISINOPRIL [Concomitant]
  12. LOSARTAN [Concomitant]
     Indication: PRODUCT USED FOR UNKNOWN INDICATION
     Dates: start: 201212
  13. CARVEDILOL [Concomitant]
     Indication: PRODUCT USED FOR UNKNOWN INDICATION
     Dates: start: 2013

REACTIONS (4)
  - Myocardial infarction [Unknown]
  - Hypotension [Unknown]
  - Tablet physical issue [Unknown]
  - Erosive oesophagitis [Not Recovered/Not Resolved]
